FAERS Safety Report 22298273 (Version 3)
Quarter: 2023Q2

REPORT INFORMATION
  Report Type: Spontaneous
  Country: US (occurrence: US)
  Receive Date: 20230509
  Receipt Date: 20230630
  Transmission Date: 20230722
  Serious: Yes (Hospitalization, Other)
  Sender: FDA-Public Use
  Company Number: US-GLAXOSMITHKLINE-US2023AMR065400

PATIENT

DRUGS (3)
  1. NUCALA [Suspect]
     Active Substance: MEPOLIZUMAB
     Indication: Hypereosinophilic syndrome
     Dosage: 300 MG 3 X 100 MG LYO VIAL
     Route: 058
     Dates: start: 20220926
  2. NUCALA [Suspect]
     Active Substance: MEPOLIZUMAB
     Dosage: 300 MG
     Route: 058
     Dates: start: 20221212
  3. NUCALA [Suspect]
     Active Substance: MEPOLIZUMAB
     Dosage: 300 MG
     Route: 058
     Dates: start: 20221212

REACTIONS (3)
  - Colitis microscopic [Unknown]
  - Diarrhoea [Unknown]
  - Shigella test positive [Unknown]

NARRATIVE: CASE EVENT DATE: 20221221
